FAERS Safety Report 22288436 (Version 1)
Quarter: 2023Q2

REPORT INFORMATION
  Report Type: Spontaneous
  Country: US (occurrence: None)
  Receive Date: 20230504
  Receipt Date: 20230504
  Transmission Date: 20230722
  Serious: Yes (Hospitalization)
  Sender: FDA-Public Use
  Company Number: None

PATIENT
  Sex: Female
  Weight: 56.7 kg

DRUGS (1)
  1. CISPLATIN [Suspect]
     Active Substance: CISPLATIN
     Dates: end: 20230425

REACTIONS (6)
  - Nausea [None]
  - Vomiting [None]
  - Abdominal pain [None]
  - Neutropenia [None]
  - Thrombocytopenia [None]
  - Normocytic anaemia [None]

NARRATIVE: CASE EVENT DATE: 20230503
